FAERS Safety Report 9087145 (Version 1)
Quarter: 2013Q1

REPORT INFORMATION
  Report Type: Report from Study
  Country: US (occurrence: US)
  Receive Date: 20130131
  Receipt Date: 20130131
  Transmission Date: 20140127
  Serious: Yes (Other)
  Sender: FDA-Public Use
  Company Number: US-ABBOTT-12P-163-0989441-00

PATIENT
  Age: 22 Year
  Sex: Female

DRUGS (2)
  1. HUMIRA [Suspect]
     Indication: PSORIATIC ARTHROPATHY
  2. HUMIRA [Suspect]
     Dates: start: 20120912

REACTIONS (4)
  - Knee operation [Recovering/Resolving]
  - Fatigue [Unknown]
  - Ear infection [Unknown]
  - Oropharyngeal pain [Unknown]
